FAERS Safety Report 8475041-8 (Version None)
Quarter: 2012Q2

REPORT INFORMATION
  Report Type: 
  Country: None (occurrence: None)
  Receive Date: 20120628
  Receipt Date: 20120618
  Transmission Date: 20120825
  Serious: Yes (Death)
  Sender: FDA-Public Use
  Company Number: US-PFIZER INC-2012148613

PATIENT
  Age: 69 Year
  Sex: Female

DRUGS (3)
  1. OXYCODONE HYDROCHLORIDE [Suspect]
     Dosage: UNK
  2. KEPPRA [Suspect]
     Dosage: UNK
  3. METHADONE [Suspect]
     Dosage: UNK

REACTIONS (2)
  - TOXICITY TO VARIOUS AGENTS [None]
  - ACCIDENT [None]
